FAERS Safety Report 15837252 (Version 2)
Quarter: 2019Q1

REPORT INFORMATION
  Report Type: Spontaneous
  Country: BG (occurrence: BG)
  Receive Date: 20190117
  Receipt Date: 20190123
  Transmission Date: 20190417
  Serious: Yes (Other)
  Sender: FDA-Public Use
  Company Number: PHHY2019BG003804

PATIENT
  Age: 13 Year
  Sex: Female

DRUGS (5)
  1. CYTARABINE. [Suspect]
     Active Substance: CYTARABINE
     Indication: B PRECURSOR TYPE ACUTE LEUKAEMIA
     Dosage: 2 G/M2, UNK
     Route: 065
  2. METHOTREXATE. [Suspect]
     Active Substance: METHOTREXATE
     Indication: B PRECURSOR TYPE ACUTE LEUKAEMIA
     Dosage: 5 G/M2, UNK
     Route: 065
  3. VINCRISTINE [Suspect]
     Active Substance: VINCRISTINE
     Indication: B PRECURSOR TYPE ACUTE LEUKAEMIA
     Dosage: 2 MG, BID
     Route: 065
  4. CYCLOPHOSPHAMIDE. [Suspect]
     Active Substance: CYCLOPHOSPHAMIDE
     Indication: B PRECURSOR TYPE ACUTE LEUKAEMIA
     Dosage: 200 MG/M2, Q24H
     Route: 065
  5. DEXAMETHASONE. [Suspect]
     Active Substance: DEXAMETHASONE
     Indication: B PRECURSOR TYPE ACUTE LEUKAEMIA
     Dosage: 24 MG/M2, Q24H
     Route: 065

REACTIONS (14)
  - Quadriparesis [Recovered/Resolved]
  - Status epilepticus [Recovered/Resolved]
  - Renal failure [Unknown]
  - Pain [Recovered/Resolved]
  - Electrolyte imbalance [Unknown]
  - Amblyopia [Unknown]
  - Muscular dystrophy [Recovered/Resolved]
  - Gait disturbance [Recovered/Resolved]
  - Monoparesis [Recovered/Resolved]
  - Acute respiratory failure [Unknown]
  - Partial seizures [Recovered/Resolved]
  - Generalised tonic-clonic seizure [Recovered/Resolved]
  - Posterior reversible encephalopathy syndrome [Recovered/Resolved]
  - Bone marrow failure [Unknown]
